FAERS Safety Report 9628550 (Version 1)
Quarter: 2013Q4

REPORT INFORMATION
  Report Type: Spontaneous
  Country: IN (occurrence: IN)
  Receive Date: 20131017
  Receipt Date: 20131017
  Transmission Date: 20140711
  Serious: Yes (Other)
  Sender: FDA-Public Use
  Company Number: IN-SUN PHARMACEUTICAL INDUSTRIES LTD-2013SUN04829

PATIENT
  Age: 34 Year
  Sex: Female

DRUGS (4)
  1. CLOZAPINE 100 MG TABLETS [Suspect]
     Indication: SCHIZOPHRENIA, PARANOID TYPE
     Dosage: 200 MG, UNK
     Route: 065
  2. CLOZAPINE 100 MG TABLETS [Suspect]
     Dosage: 100 UNK, UNK
     Route: 065
  3. CLOZAPINE 100 MG TABLETS [Suspect]
     Dosage: 200 UNK, UNK
     Route: 065
  4. CLOZAPINE 100 MG TABLETS [Suspect]
     Dosage: 300 UNK, UNK
     Route: 065

REACTIONS (2)
  - Restless legs syndrome [Recovered/Resolved]
  - Initial insomnia [Recovered/Resolved]
